FAERS Safety Report 14884236 (Version 1)
Quarter: 2018Q2

REPORT INFORMATION
  Report Type: Spontaneous
  Country: US (occurrence: US)
  Receive Date: 20180511
  Receipt Date: 20180511
  Transmission Date: 20180711
  Serious: No
  Sender: FDA-Public Use
  Company Number: US-009507513-1804USA008660

PATIENT
  Age: 9 Year
  Sex: Female

DRUGS (4)
  1. CLOBETASOL PROPIONATE. [Concomitant]
     Active Substance: CLOBETASOL PROPIONATE
     Indication: LICHEN SCLEROSUS
  2. ELOCON [Suspect]
     Active Substance: MOMETASONE FUROATE
     Indication: VITILIGO
  3. ELOCON [Suspect]
     Active Substance: MOMETASONE FUROATE
     Indication: LICHEN SCLEROSUS
  4. CLOBETASOL PROPIONATE. [Concomitant]
     Active Substance: CLOBETASOL PROPIONATE
     Indication: VITILIGO

REACTIONS (1)
  - Product use in unapproved indication [Unknown]
